FAERS Safety Report 11286613 (Version 1)
Quarter: 2015Q3

REPORT INFORMATION
  Report Type: Spontaneous
  Country: US (occurrence: US)
  Receive Date: 20150721
  Receipt Date: 20150721
  Transmission Date: 20151125
  Serious: No
  Sender: FDA-Public Use
  Company Number: US-UNITED THERAPEUTICS-UNT-2015-002742

PATIENT
  Sex: Male
  Weight: 79.82 kg

DRUGS (2)
  1. VELETRI [Concomitant]
     Active Substance: EPOPROSTENOL
     Indication: PRODUCT USED FOR UNKNOWN INDICATION
  2. TYVASO [Suspect]
     Active Substance: TREPROSTINIL
     Indication: PULMONARY HYPERTENSION
     Dosage: 18-54 MICROGRAMS, QID
     Dates: start: 20150106

REACTIONS (6)
  - Drug ineffective [Unknown]
  - Chest pain [Unknown]
  - Asthenia [Unknown]
  - Cough [Unknown]
  - Exercise tolerance decreased [Unknown]
  - Malaise [Unknown]
